FAERS Safety Report 5193738-2 (Version None)
Quarter: 2006Q4

REPORT INFORMATION
  Report Type: 
  Country: None (occurrence: None)
  Receive Date: 20061228
  Receipt Date: 20061227
  Transmission Date: 20070319
  Serious: Yes (Hospitalization)
  Sender: FDA-Public Use
  Company Number: US-GLAXOSMITHKLINE-A0632616A

PATIENT
  Age: 79 Year
  Sex: Male

DRUGS (7)
  1. AVANDIA [Suspect]
     Indication: DIABETES MELLITUS NON-INSULIN-DEPENDENT
     Dosage: 8MG PER DAY
     Route: 048
     Dates: start: 20040101
  2. NOVOLOG [Concomitant]
  3. LANTUS [Concomitant]
  4. NORVASC [Concomitant]
  5. DARVON [Concomitant]
  6. TYLENOL [Concomitant]
  7. TRAMADOL HCL [Concomitant]

REACTIONS (6)
  - OEDEMA [None]
  - OEDEMA PERIPHERAL [None]
  - PNEUMONIA [None]
  - POLYMYALGIA RHEUMATICA [None]
  - RED BLOOD CELL SEDIMENTATION RATE INCREASED [None]
  - WEIGHT INCREASED [None]
